FAERS Safety Report 6176922-0 (Version None)
Quarter: 2009Q2

REPORT INFORMATION
  Report Type: 
  Country: None (occurrence: None)
  Receive Date: 20090501
  Receipt Date: 20090423
  Transmission Date: 20091009
  Serious: Yes (Hospitalization)
  Sender: FDA-Public Use
  Company Number: JP-AMGEN-US344660

PATIENT
  Sex: Male
  Weight: 66 kg

DRUGS (15)
  1. PANITUMUMAB [Suspect]
     Indication: SQUAMOUS CELL CARCINOMA
     Route: 041
     Dates: start: 20081112
  2. BRIPLATIN [Concomitant]
     Route: 041
     Dates: start: 20090327
  3. FLUOROURACIL [Concomitant]
     Route: 041
     Dates: start: 20090327, end: 20090331
  4. MORPHES [Concomitant]
     Route: 048
     Dates: start: 20081031
  5. DEXALTIN OINT [Concomitant]
     Route: 048
     Dates: start: 20081110
  6. PANTETHINE [Concomitant]
     Route: 048
  7. MAGUMITT [Concomitant]
     Route: 048
  8. GARASONE [Concomitant]
     Route: 062
     Dates: start: 20081212
  9. RESTAMIN KOWA [Concomitant]
     Route: 062
     Dates: start: 20080304
  10. EKSALB [Concomitant]
     Route: 062
     Dates: start: 20090129
  11. LENDORMIN D [Concomitant]
     Route: 048
     Dates: start: 20090309
  12. GENTAMICIN [Concomitant]
     Route: 062
     Dates: start: 20090209
  13. KENTAN [Concomitant]
     Route: 048
  14. MYSER [Concomitant]
     Route: 062
     Dates: start: 20090216
  15. MARZULENE [Concomitant]
     Route: 048

REACTIONS (1)
  - BACK PAIN [None]
